FAERS Safety Report 13305702 (Version 1)
Quarter: 2017Q1

REPORT INFORMATION
  Report Type: Spontaneous
  Country: US (occurrence: US)
  Receive Date: 20170308
  Receipt Date: 20170308
  Transmission Date: 20170428
  Serious: Yes (Other)
  Sender: FDA-Public Use
  Company Number: None

PATIENT

DRUGS (2)
  1. XYLOCAINE MPF [Suspect]
     Active Substance: LIDOCAINE HYDROCHLORIDE
     Indication: CARDIAC PACEMAKER INSERTION
     Dosage: ?          OTHER FREQUENCY:PRIOR TO PROCEDURE;?
     Route: 023
     Dates: start: 20170102, end: 20170228
  2. XYLOCAINE WITH EPINEPHRINE [Suspect]
     Active Substance: EPINEPHRINE BITARTRATE\LIDOCAINE HYDROCHLORIDE
     Indication: CARDIAC PACEMAKER INSERTION
     Dosage: ?          OTHER FREQUENCY:PRIOR TO PROCEDURE;?
     Route: 023
     Dates: start: 20170102, end: 20170228

REACTIONS (3)
  - Discomfort [None]
  - Product substitution issue [None]
  - Drug effect decreased [None]

NARRATIVE: CASE EVENT DATE: 20170228
